FAERS Safety Report 4663956-8 (Version None)
Quarter: 2005Q2

REPORT INFORMATION
  Report Type: 
  Country: None (occurrence: None)
  Receive Date: 20050415
  Receipt Date: 20050214
  Transmission Date: 20051028
  Serious: Yes (Hospitalization)
  Sender: FDA-Public Use
  Company Number: PHEH2005US00919

PATIENT
  Age: 43 Year
  Sex: Female

DRUGS (1)
  1. FORADIL [Suspect]
     Indication: ASTHMA
     Dosage: ONE INHALATION TWICE DAILY, INHALATION
     Dates: start: 20030219, end: 20041012

REACTIONS (2)
  - PALPITATIONS [None]
  - TACHYCARDIA [None]
